FAERS Safety Report 5018365-9 (Version None)
Quarter: 2006Q2

REPORT INFORMATION
  Report Type: 
  Country: None (occurrence: None)
  Receive Date: 20060530
  Receipt Date: 20050607
  Transmission Date: 20061013
  Serious: Yes (Hospitalization)
  Sender: FDA-Public Use
  Company Number: 2005086464

PATIENT
  Age: 40 Year
  Sex: Female
  Weight: 80 kg

DRUGS (3)
  1. LYRICA [Suspect]
     Indication: ANALGESIC EFFECT
     Dosage: 150 MG (75 MG, 2 IN 1 D), ORAL
     Route: 048
     Dates: start: 20050518, end: 20050520
  2. OCTREOTIDE ACETATE [Concomitant]
  3. PERATIVE        (PERATIVE) [Concomitant]

REACTIONS (2)
  - MUSCLE SPASMS [None]
  - MUSCLE TWITCHING [None]
